FAERS Safety Report 7591188-2 (Version None)
Quarter: 2011Q3

REPORT INFORMATION
  Report Type: 
  Country: None (occurrence: None)
  Receive Date: 20110706
  Receipt Date: 20110627
  Transmission Date: 20111222
  Serious: Yes (Hospitalization)
  Sender: FDA-Public Use
  Company Number: JP-BRISTOL-MYERS SQUIBB COMPANY-15861511

PATIENT
  Age: 52 Year
  Sex: Female

DRUGS (1)
  1. KENACORT [Suspect]
     Indication: SINUSITIS
     Route: 030

REACTIONS (4)
  - THROMBOSIS [None]
  - UTERINE DISORDER [None]
  - ANAPHYLACTOID REACTION [None]
  - VISION BLURRED [None]
